FAERS Safety Report 8555334-6 (Version None)
Quarter: 2012Q3

REPORT INFORMATION
  Report Type: 
  Country: None (occurrence: None)
  Receive Date: 20120731
  Receipt Date: 20110823
  Transmission Date: 20120928
  Serious: No
  Sender: FDA-Public Use
  Company Number: US-ASTRAZENECA-2011SE38823

PATIENT
  Age: 41 Year
  Sex: Male

DRUGS (2)
  1. VALIUM [Concomitant]
  2. SEROQUEL XR [Suspect]
     Indication: BIPOLAR DISORDER
     Route: 048

REACTIONS (6)
  - INCORRECT DOSE ADMINISTERED [None]
  - PANIC ATTACK [None]
  - SOMNOLENCE [None]
  - BLOOD PRESSURE DECREASED [None]
  - DEPRESSION [None]
  - DRUG EFFECT DECREASED [None]
